FAERS Safety Report 9760331 (Version 2)
Quarter: 2015Q3

REPORT INFORMATION
  Report Type: Spontaneous
  Country: US (occurrence: US)
  Receive Date: 20131216
  Receipt Date: 20150806
  Transmission Date: 20151125
  Serious: No
  Sender: FDA-Public Use
  Company Number: US-GILEAD-2010-0029247

PATIENT
  Age: 22 Year
  Sex: Female
  Weight: 63.5 kg

DRUGS (5)
  1. LETAIRIS [Suspect]
     Active Substance: AMBRISENTAN
     Indication: PULMONARY ARTERIAL HYPERTENSION
     Route: 048
     Dates: start: 20100305
  2. REVATIO [Concomitant]
     Active Substance: SILDENAFIL CITRATE
  3. NEXIUM [Concomitant]
     Active Substance: ESOMEPRAZOLE MAGNESIUM
  4. IRON SUPPLEMENT [Concomitant]
     Active Substance: IRON
  5. MAG-OX [Concomitant]
     Active Substance: MAGNESIUM OXIDE

REACTIONS (1)
  - Palpitations [Unknown]
